FAERS Safety Report 10230848 (Version 4)
Quarter: 2014Q3

REPORT INFORMATION
  Report Type: Spontaneous
  Country: CA (occurrence: CA)
  Receive Date: 20140611
  Receipt Date: 20140722
  Transmission Date: 20150326
  Serious: Yes (Other)
  Sender: FDA-Public Use
  Company Number: PHHY2014CA068763

PATIENT
  Age: 60 Year
  Sex: Male

DRUGS (1)
  1. AMIODARONE SANDOZ [Suspect]
     Active Substance: AMIODARONE
     Indication: VENTRICULAR TACHYCARDIA
     Dosage: 900 MG OVER 24HRS
     Route: 042

REACTIONS (7)
  - Bacterial infection [Recovered/Resolved]
  - Injection site discolouration [Unknown]
  - Thrombosis [Recovered/Resolved]
  - Injection site induration [Unknown]
  - Cellulitis [Recovered/Resolved]
  - Phlebitis [Recovered/Resolved]
  - Injection site erythema [Recovered/Resolved]
